FAERS Safety Report 7329629-8 (Version None)
Quarter: 2011Q1

REPORT INFORMATION
  Report Type: 
  Country: None (occurrence: None)
  Receive Date: 20110222
  Receipt Date: 20110208
  Transmission Date: 20110831
  Serious: Yes (Hospitalization)
  Sender: FDA-Public Use
  Company Number: 2011SP006022

PATIENT
  Age: 47 Year
  Sex: Female

DRUGS (1)
  1. TEMOZOLOMIDE [Suspect]
     Indication: BRAIN STEM GLIOMA
     Dosage: 290 MG; QD; PO
     Route: 048
     Dates: start: 20100101

REACTIONS (2)
  - CHOLECYSTITIS ACUTE [None]
  - HEPATIC FUNCTION ABNORMAL [None]
